FAERS Safety Report 7265148-5 (Version None)
Quarter: 2011Q1

REPORT INFORMATION
  Report Type: 
  Country: None (occurrence: None)
  Receive Date: 20110131
  Receipt Date: 20110126
  Transmission Date: 20110831
  Serious: Yes (Life-Threatening)
  Sender: FDA-Public Use
  Company Number: PHHY2011US05267

PATIENT
  Sex: Female
  Weight: 167 kg

DRUGS (1)
  1. VALTURNA [Suspect]
     Indication: HYPERTENSION
     Dosage: 300/320 MG, QD
     Route: 048
     Dates: start: 20101223, end: 20110117

REACTIONS (2)
  - PLATELET COUNT DECREASED [None]
  - CONTUSION [None]
